FAERS Safety Report 9470918 (Version 1)
Quarter: 2013Q3

REPORT INFORMATION
  Report Type: Spontaneous
  Country: US (occurrence: US)
  Receive Date: 20130822
  Receipt Date: 20130822
  Transmission Date: 20140515
  Serious: No
  Sender: FDA-Public Use
  Company Number: US-SANOFI-AVENTIS-2013SA052545

PATIENT
  Sex: Female

DRUGS (2)
  1. AUVI-Q [Suspect]
  2. EPINEPHRINE [Concomitant]

REACTIONS (1)
  - Injection site pain [Unknown]
